FAERS Safety Report 15822896 (Version 6)
Quarter: 2023Q1

REPORT INFORMATION
  Report Type: Spontaneous
  Country: FR (occurrence: None)
  Receive Date: 20190114
  Receipt Date: 20230323
  Transmission Date: 20230418
  Serious: Yes (Death, Life-Threatening, Hospitalization, Disabling, Other)
  Sender: FDA-Public Use
  Company Number: 2019SE04871

PATIENT
  Sex: Female
  Weight: 55 kg

DRUGS (20)
  1. OMEPRAZOLE [Suspect]
     Active Substance: OMEPRAZOLE
     Indication: Dyspepsia
     Dosage: 1 DF,QD
     Route: 048
     Dates: start: 20160728
  2. FLAGYL [Suspect]
     Active Substance: METRONIDAZOLE\METRONIDAZOLE HYDROCHLORIDE
     Indication: Gingivitis ulcerative
     Dosage: 1 G,QD
     Route: 048
     Dates: start: 20160721, end: 2016
  3. FLAGYL [Suspect]
     Active Substance: METRONIDAZOLE\METRONIDAZOLE HYDROCHLORIDE
     Indication: Abnormal behaviour
     Dosage: 1 G,QD
     Route: 048
     Dates: start: 20160721, end: 2016
  4. FLAGYL [Suspect]
     Active Substance: METRONIDAZOLE\METRONIDAZOLE HYDROCHLORIDE
     Indication: Gingivitis ulcerative
     Dosage: 1 G,QD/1 GRAM DAILY
     Route: 048
     Dates: start: 20160721, end: 20160729
  5. FLAGYL [Suspect]
     Active Substance: METRONIDAZOLE\METRONIDAZOLE HYDROCHLORIDE
     Indication: Abnormal behaviour
     Dosage: 1 G,QD/1 GRAM DAILY
     Route: 048
     Dates: start: 20160721, end: 20160729
  6. FLAGYL [Suspect]
     Active Substance: METRONIDAZOLE\METRONIDAZOLE HYDROCHLORIDE
     Indication: Gingivitis ulcerative
     Dosage: 9 GRAMS
     Route: 048
  7. FLAGYL [Suspect]
     Active Substance: METRONIDAZOLE\METRONIDAZOLE HYDROCHLORIDE
     Indication: Abnormal behaviour
     Dosage: 9 GRAMS
     Route: 048
  8. ACETAMINOPHEN [Concomitant]
     Active Substance: ACETAMINOPHEN
     Dosage: UNK
     Dates: start: 20160721
  9. PAROEX [Concomitant]
     Active Substance: CHLORHEXIDINE GLUCONATE
     Dosage: UNK
     Dates: start: 20160721
  10. ETHINYL ESTRADIOL\LEVONORGESTREL [Concomitant]
     Active Substance: ETHINYL ESTRADIOL\LEVONORGESTREL
     Dosage: 0.1 MG/0.02 MG,
     Route: 048
     Dates: start: 2014
  11. CLOTIAZEPAM [Concomitant]
     Active Substance: CLOTIAZEPAM
     Indication: Partner stress
     Dosage: 5 MG,
  12. GABAPENTIN [Concomitant]
     Active Substance: GABAPENTIN
     Dosage: UNK
     Dates: start: 20160721
  13. CYMBALTA [Concomitant]
     Active Substance: DULOXETINE HYDROCHLORIDE
     Dosage: UNK
     Dates: start: 20160721
  14. DOLIPRANE [Concomitant]
     Active Substance: ACETAMINOPHEN
     Dosage: UNK
     Dates: start: 20160721
  15. ALPRAZOLAM [Concomitant]
     Active Substance: ALPRAZOLAM
     Indication: Partner stress
     Dosage: 5 MG,
  16. ZOLOFT [Concomitant]
     Active Substance: SERTRALINE HYDROCHLORIDE
     Indication: Partner stress
     Dosage: 5 MG,
  17. TEGRETOL [Concomitant]
     Active Substance: CARBAMAZEPINE
  18. LYRICA [Concomitant]
     Active Substance: PREGABALIN
  19. SERTRALINE [Concomitant]
     Active Substance: SERTRALINE HYDROCHLORIDE
  20. AMITRIPTYLINE HYDROCHLORIDE [Concomitant]
     Active Substance: AMITRIPTYLINE HYDROCHLORIDE

REACTIONS (37)
  - Completed suicide [Fatal]
  - Suicide attempt [Unknown]
  - Micturition disorder [Recovered/Resolved with Sequelae]
  - Insomnia [Recovered/Resolved]
  - Decreased appetite [Recovered/Resolved]
  - Feeling abnormal [Unknown]
  - Anorectal disorder [Recovered/Resolved with Sequelae]
  - Neuralgia [Recovered/Resolved with Sequelae]
  - Confusional state [Unknown]
  - Vertigo [Unknown]
  - Dyspepsia [Unknown]
  - Paraplegia [Recovered/Resolved with Sequelae]
  - Obsessive thoughts [Unknown]
  - Tooth disorder [Unknown]
  - Major depression [Unknown]
  - Internal fixation of fracture [Unknown]
  - Decreased appetite [Unknown]
  - Affective disorder [Unknown]
  - Feeling of despair [Unknown]
  - Suicidal ideation [Unknown]
  - Fatigue [Unknown]
  - Nightmare [Unknown]
  - Disturbance in attention [Unknown]
  - Anxiety [Unknown]
  - Meningorrhagia [Recovered/Resolved]
  - Cervical vertebral fracture [Unknown]
  - Pneumothorax [Unknown]
  - Toxicity to various agents [Unknown]
  - Asthenia [Unknown]
  - Emphysema [Unknown]
  - Abdominal pain [Unknown]
  - Nausea [Unknown]
  - Hypotonia [Unknown]
  - Somnolence [Unknown]
  - Nervous system disorder [Unknown]
  - Eschar [Unknown]
  - Gallbladder hyperfunction [Unknown]

NARRATIVE: CASE EVENT DATE: 20160701
